FAERS Safety Report 6828432-2 (Version None)
Quarter: 2010Q3

REPORT INFORMATION
  Report Type: 
  Country: None (occurrence: None)
  Receive Date: 20100708
  Receipt Date: 20100708
  Transmission Date: 20110219
  Serious: Yes (Death)
  Sender: FDA-Public Use
  Company Number: None

PATIENT
  Age: 14 Year
  Sex: Male
  Weight: 50.8029 kg

DRUGS (1)
  1. CONCERTA [Suspect]
     Dates: start: 20090307, end: 20090331

REACTIONS (4)
  - AGITATION [None]
  - COMPLETED SUICIDE [None]
  - HYPOPHAGIA [None]
  - INSOMNIA [None]
